FAERS Safety Report 5786915-0 (Version None)
Quarter: 2008Q2

REPORT INFORMATION
  Report Type: 
  Country: None (occurrence: None)
  Receive Date: 20080625
  Receipt Date: 20080613
  Transmission Date: 20081010
  Serious: Yes (Hospitalization)
  Sender: FDA-Public Use
  Company Number: IT-JNJFOC-20080403844

PATIENT
  Age: 19 Year
  Sex: Female

DRUGS (1)
  1. PRIXAR [Suspect]
     Indication: URINARY TRACT INFECTION
     Route: 048
     Dates: start: 20080403, end: 20080403

REACTIONS (3)
  - ANGIOEDEMA [None]
  - LARYNGEAL STENOSIS [None]
  - URTICARIA [None]
